FAERS Safety Report 5435191-7 (Version None)
Quarter: 2007Q3

REPORT INFORMATION
  Report Type: 
  Country: None (occurrence: None)
  Receive Date: 20070828
  Receipt Date: 20070828
  Transmission Date: 20080115
  Serious: Yes (Hospitalization)
  Sender: FDA-Public Use
  Company Number: None

PATIENT
  Sex: Male

DRUGS (8)
  1. REVLIMID [Suspect]
     Indication: MYELODYSPLASTIC SYNDROME
     Dosage: 5MG DAILY 21D/28D PO
     Route: 048
     Dates: start: 20070724, end: 20070813
  2. SIMVASTATIN [Concomitant]
  3. ISORDIL [Concomitant]
  4. LASIX [Concomitant]
  5. GLIPIZIDE [Concomitant]
  6. ATENOLOL [Concomitant]
  7. NOVOLIN R [Concomitant]
  8. LANTUS [Concomitant]

REACTIONS (6)
  - ALLERGIC TRANSFUSION REACTION [None]
  - HAEMOGLOBIN DECREASED [None]
  - HAEMORRHAGE [None]
  - MOUTH HAEMORRHAGE [None]
  - PLATELET COUNT DECREASED [None]
  - TONGUE BLISTERING [None]
